FAERS Safety Report 19331515 (Version 1)
Quarter: 2021Q2

REPORT INFORMATION
  Report Type: Spontaneous
  Country: RU (occurrence: RU)
  Receive Date: 20210528
  Receipt Date: 20210528
  Transmission Date: 20210717
  Serious: Yes (Hospitalization, Other)
  Sender: FDA-Public Use
  Company Number: RU-GLAXOSMITHKLINE-RUCH2021EME031387

PATIENT
  Sex: Male

DRUGS (3)
  1. IBUPROFEN. [Suspect]
     Active Substance: IBUPROFEN
     Indication: HEADACHE
     Dosage: 200 MG
  2. IBUPROFEN. [Suspect]
     Active Substance: IBUPROFEN
     Dosage: UNK UNK, QD,  200?600 MG PER DAY
  3. LOSARTAN. [Concomitant]
     Active Substance: LOSARTAN
     Indication: HYPERTENSION
     Dosage: 50 MG, QD
     Dates: start: 2018

REACTIONS (27)
  - Condition aggravated [Recovered/Resolved]
  - Pallor [Recovered/Resolved]
  - Agitation [Recovered/Resolved]
  - Electrocardiogram repolarisation abnormality [Recovered/Resolved]
  - Mitral valve incompetence [Recovered/Resolved]
  - Hypertensive angiopathy [Recovered/Resolved]
  - Gait disturbance [Recovered/Resolved]
  - Skin disorder [Recovered/Resolved]
  - Blood pressure increased [Recovered/Resolved]
  - Extensor plantar response [Recovered/Resolved]
  - Ischaemic stroke [Recovered/Resolved]
  - Dysarthria [Recovered/Resolved]
  - Hypertension [Recovered/Resolved]
  - Hypoaesthesia [Recovered/Resolved]
  - Speech disorder [Recovered/Resolved]
  - Hemiparesis [Recovered/Resolved]
  - Tongue coated [Recovered/Resolved]
  - Brachiocephalic artery stenosis [Recovered/Resolved]
  - Internal carotid artery deformity [Recovered/Resolved]
  - Asthenia [Recovered/Resolved]
  - Erythema [Recovered/Resolved]
  - Tongue paralysis [Recovered/Resolved]
  - Aortic disorder [Recovered/Resolved]
  - Drug ineffective [Unknown]
  - Left atrial dilatation [Recovered/Resolved]
  - Left ventricular hypertrophy [Recovered/Resolved]
  - Arteriosclerosis [Recovered/Resolved]

NARRATIVE: CASE EVENT DATE: 201903
